FAERS Safety Report 10026016 (Version 1)
Quarter: 2014Q1

REPORT INFORMATION
  Report Type: Spontaneous
  Country: ES (occurrence: ES)
  Receive Date: 20140320
  Receipt Date: 20140320
  Transmission Date: 20141002
  Serious: Yes (Hospitalization)
  Sender: FDA-Public Use
  Company Number: ES-KOWA-2014S1000076

PATIENT
  Age: 65 Year
  Sex: Male

DRUGS (1)
  1. LIVAZO [Suspect]
     Indication: HYPERLIPIDAEMIA
     Route: 048
     Dates: start: 20131115, end: 20131210

REACTIONS (1)
  - Hepatitis acute [Recovered/Resolved]
